FAERS Safety Report 15815600 (Version 4)
Quarter: 2019Q1

REPORT INFORMATION
  Report Type: Spontaneous
  Country: AU (occurrence: AU)
  Receive Date: 20190112
  Receipt Date: 20190115
  Transmission Date: 20190417
  Serious: Yes (Other)
  Sender: FDA-Public Use
  Company Number: PHHY2019AU003324

PATIENT
  Age: 24 Year
  Sex: Male

DRUGS (1)
  1. CICLOSPORIN [Suspect]
     Active Substance: CYCLOSPORINE
     Indication: PRODUCT USED FOR UNKNOWN INDICATION
     Dosage: UNK
     Route: 065

REACTIONS (4)
  - Fungaemia [Unknown]
  - Aplastic anaemia [Unknown]
  - Bacteraemia [Unknown]
  - Cytopenia [Unknown]

NARRATIVE: CASE EVENT DATE: 201811
